FAERS Safety Report 9952197 (Version 1)
Quarter: 2014Q1

REPORT INFORMATION
  Report Type: Spontaneous
  Country: US (occurrence: US)
  Receive Date: 20140304
  Receipt Date: 20140304
  Transmission Date: 20141002
  Serious: Yes (Hospitalization, Other)
  Sender: FDA-Public Use
  Company Number: US-TEVA-466104USA

PATIENT
  Age: 73 Year
  Sex: Female
  Weight: 108.96 kg

DRUGS (17)
  1. TREANDA [Suspect]
     Indication: NON-HODGKIN^S LYMPHOMA
     Dosage: 3 CYLCES
  2. LASIX [Concomitant]
     Indication: OEDEMA
  3. LASIX [Concomitant]
     Indication: HYPERTENSION
  4. ATENOLOL [Concomitant]
     Indication: HYPERTENSION
     Dosage: 50 MILLIGRAM DAILY;
     Route: 048
  5. POTASSIUM [Concomitant]
     Indication: SUPPLEMENTATION THERAPY
  6. CYMBALTA [Concomitant]
     Indication: DEPRESSION
  7. QUESTRAN [Concomitant]
     Indication: DIABETES MELLITUS
  8. LIPITOR [Concomitant]
     Indication: BLOOD CHOLESTEROL INCREASED
  9. OMEPRAZOLE [Concomitant]
  10. BETHANECHOL [Concomitant]
  11. REMERON [Concomitant]
  12. COUMADIN [Concomitant]
     Indication: PROPHYLAXIS
  13. BACTRIM [Concomitant]
     Indication: URINARY TRACT INFECTION
  14. BUSPIRONE [Concomitant]
  15. ALPRAZOLAM [Concomitant]
     Indication: ANXIETY
  16. LANTUS [Concomitant]
     Indication: DIABETES MELLITUS
  17. VANCOMYCIN [Concomitant]
     Indication: CYSTITIS
     Route: 042

REACTIONS (7)
  - Cystitis [Not Recovered/Not Resolved]
  - Platelet count decreased [Not Recovered/Not Resolved]
  - White blood cell count decreased [Not Recovered/Not Resolved]
  - Blood count abnormal [Not Recovered/Not Resolved]
  - Haemoglobin abnormal [Unknown]
  - White blood cell count decreased [Not Recovered/Not Resolved]
  - Red blood cell count abnormal [Not Recovered/Not Resolved]
